FAERS Safety Report 14784470 (Version 2)
Quarter: 2018Q2

REPORT INFORMATION
  Report Type: Spontaneous
  Country: BE (occurrence: BE)
  Receive Date: 20180420
  Receipt Date: 20180605
  Transmission Date: 20180711
  Serious: Yes (Disabling)
  Sender: FDA-Public Use
  Company Number: BE-ASTRAZENECA-2018SE40331

PATIENT
  Age: 27304 Day
  Sex: Male
  Weight: 80 kg

DRUGS (1)
  1. SYMBICORT [Suspect]
     Active Substance: BUDESONIDE\FORMOTEROL FUMARATE DIHYDRATE
     Indication: ASTHMA
     Dosage: 160MCG/4.5MCG AT A DOSE OF 1 INHALATION TWICE DAILY
     Route: 055
     Dates: start: 20171004, end: 20180315

REACTIONS (4)
  - Drug ineffective [Unknown]
  - Underdose [Unknown]
  - Dyspnoea [Unknown]
  - Device malfunction [Unknown]

NARRATIVE: CASE EVENT DATE: 20171004
